FAERS Safety Report 4873048-0 (Version None)
Quarter: 2005Q4

REPORT INFORMATION
  Report Type: 
  Country: None (occurrence: None)
  Receive Date: 20051201
  Receipt Date: 20050715
  Transmission Date: 20060501
  Serious: No
  Sender: FDA-Public Use
  Company Number: 2005PV000389

PATIENT
  Age: 54 Year
  Sex: Female
  Weight: 117.9352 kg

DRUGS (7)
  1. BYETTA [Suspect]
     Indication: DIABETES MELLITUS NON-INSULIN-DEPENDENT
     Dosage: 5 MCG; BID; SC
     Route: 058
     Dates: start: 20050714
  2. METFORMIN [Concomitant]
  3. GLYBURIDE [Concomitant]
  4. MICARDIS HCT [Concomitant]
  5. VOLTAREN [Concomitant]
  6. DYNACIRC [Concomitant]
  7. LIPITOR [Concomitant]

REACTIONS (1)
  - INJECTION SITE BRUISING [None]
